FAERS Safety Report 22184808 (Version 1)
Quarter: 2023Q2

REPORT INFORMATION
  Report Type: Spontaneous
  Country: US (occurrence: US)
  Receive Date: 20230407
  Receipt Date: 20230407
  Transmission Date: 20230722
  Serious: Yes (Hospitalization, Other)
  Sender: FDA-Public Use
  Company Number: US-AMGEN-USASP2023056090

PATIENT
  Age: 70 Year
  Sex: Male
  Weight: 136.05 kg

DRUGS (17)
  1. KYPROLIS [Suspect]
     Active Substance: CARFILZOMIB
     Indication: Plasma cell myeloma
     Dosage: 20 MILLIGRAM/SQ. METER, QWK
     Route: 042
     Dates: start: 20220308, end: 20220308
  2. REVLIMID [Suspect]
     Active Substance: LENALIDOMIDE
     Indication: Plasma cell myeloma
     Dosage: 10 MILLIGRAM, 28 DAYS CONTINUOUS
     Route: 048
     Dates: start: 20131231, end: 20150908
  3. VELCADE [Suspect]
     Active Substance: BORTEZOMIB
     Indication: Plasma cell myeloma
     Dosage: 1.3 MILLIGRAM/SQ. METER, I X WEEKLY, NO REST PERIOD: DAY 1 Q 7D
     Route: 058
     Dates: start: 20131217, end: 20150908
  4. VELCADE [Suspect]
     Active Substance: BORTEZOMIB
     Dosage: 1.3 MILLIGRAM/SQ. METER, 1 X WEEKLY, DAY 1 Q 7 DAYS, 1 WK OFF Q 14D
     Route: 058
     Dates: start: 20181128, end: 20190528
  5. VELCADE [Suspect]
     Active Substance: BORTEZOMIB
     Dosage: 1.3 MILLIGRAM/SQ. METER, 1 X WEEKLY, DAY 1 Q 7 DAYS, 1 WK OFF Q 14D
     Route: 058
     Dates: start: 20190910, end: 20200204
  6. DECADRON [Suspect]
     Active Substance: DEXAMETHASONE
     Indication: Plasma cell myeloma
     Dosage: HIGH DOSE
     Route: 048
     Dates: start: 20131217, end: 20140106
  7. DECADRON [Suspect]
     Active Substance: DEXAMETHASONE
     Dosage: HIGH DOSE
     Route: 048
     Dates: start: 20140107, end: 20140113
  8. DECADRON [Suspect]
     Active Substance: DEXAMETHASONE
     Dosage: HIGH DOSE
     Route: 048
     Dates: start: 20140114, end: 20150908
  9. DECADRON [Suspect]
     Active Substance: DEXAMETHASONE
     Dosage: HIGH DOSE
     Route: 048
     Dates: start: 20210413, end: 20220201
  10. DECADRON [Suspect]
     Active Substance: DEXAMETHASONE
     Dosage: HIGH DOSE
     Route: 042
     Dates: start: 20220308, end: 20220308
  11. POMALIDOMIDE [Concomitant]
     Active Substance: POMALIDOMIDE
     Dosage: 4 MILLIGRAM, DAILY 21 DAYS, OFF 7 DAYS
     Route: 048
     Dates: start: 20210318, end: 20210831
  12. POMALIDOMIDE [Concomitant]
     Active Substance: POMALIDOMIDE
     Dosage: 4 MILLIGRAM, DAILY 21 DAYS, OFF 7 DAYS
     Route: 048
     Dates: start: 20210901, end: 20220201
  13. DARZALEX [Concomitant]
     Active Substance: DARATUMUMAB
     Dosage: 16 MILLIGRAM/KILOGRAM
     Route: 042
     Dates: start: 20200317, end: 20200512
  14. DARZALEX [Concomitant]
     Active Substance: DARATUMUMAB
     Dosage: 16 MILLIGRAM/KILOGRAM, Q2WK
     Route: 042
     Dates: start: 20200526, end: 20200818
  15. DARZALEX [Concomitant]
     Active Substance: DARATUMUMAB
     Dosage: 16 MILLIGRAM/KILOGRAM, Q4WK
     Route: 042
     Dates: start: 20200915, end: 20210316
  16. DARZALEX [Concomitant]
     Active Substance: DARATUMUMAB
     Dosage: 16 MILLIGRAM/KILOGRAM, Q4WK
     Route: 042
     Dates: start: 20210413, end: 20220111
  17. DARZALEX FASPRO [Concomitant]
     Active Substance: DARATUMUMAB\HYALURONIDASE-FIHJ
     Dosage: 1800 MILLIGRAM, Q4WK
     Route: 058
     Dates: start: 20220308, end: 20220308

REACTIONS (6)
  - Second primary malignancy [Not Recovered/Not Resolved]
  - Prostate cancer [Unknown]
  - Colon cancer [Unknown]
  - Cerebrovascular accident [Unknown]
  - Meningitis [Unknown]
  - Hyperglycaemia [Unknown]

NARRATIVE: CASE EVENT DATE: 20221118
